FAERS Safety Report 19963022 (Version 1)
Quarter: 2021Q4

REPORT INFORMATION
  Report Type: Spontaneous
  Country: US (occurrence: US)
  Receive Date: 20211015
  Receipt Date: 20211015
  Transmission Date: 20220304
  Serious: No
  Sender: FDA-Public Use
  Company Number: None

PATIENT
  Age: 22 Year
  Sex: Male
  Weight: 114.75 kg

DRUGS (5)
  1. CETIRIZINE [Suspect]
     Active Substance: CETIRIZINE HYDROCHLORIDE
     Indication: Multiple allergies
     Dosage: ?          QUANTITY:1 TABLET(S);
     Route: 048
  2. LEXAPRO [Concomitant]
     Active Substance: ESCITALOPRAM OXALATE
  3. SINGULAIR [Concomitant]
     Active Substance: MONTELUKAST SODIUM
  4. ZYRTEC [Concomitant]
     Active Substance: CETIRIZINE HYDROCHLORIDE
  5. RHINOCORT [Concomitant]
     Active Substance: BUDESONIDE

REACTIONS (4)
  - Pruritus [None]
  - Insomnia [None]
  - Disturbance in attention [None]
  - Skin injury [None]

NARRATIVE: CASE EVENT DATE: 20211012
